FAERS Safety Report 19903421 (Version 8)
Quarter: 2022Q1

REPORT INFORMATION
  Report Type: Spontaneous
  Country: CA (occurrence: CA)
  Receive Date: 20211001
  Receipt Date: 20220305
  Transmission Date: 20220423
  Serious: Yes (Hospitalization, Other)
  Sender: FDA-Public Use
  Company Number: CA-CELLTRION INC.-2021CA012750

PATIENT

DRUGS (9)
  1. INFLECTRA [Suspect]
     Active Substance: INFLIXIMAB-DYYB
     Indication: Crohn^s disease
     Dosage: 400 MG INDUCTION AT 0 , 2, 6 WEEK THEN EVERY 8 WEEKS
     Route: 042
     Dates: start: 20210609, end: 20210723
  2. INFLECTRA [Suspect]
     Active Substance: INFLIXIMAB-DYYB
     Dosage: 400 MG INDUCTION AT 0 , 2, 6 WEEK THEN EVERY 8 WEEKS
     Route: 042
     Dates: start: 20210623
  3. INFLECTRA [Suspect]
     Active Substance: INFLIXIMAB-DYYB
     Dosage: 400 MG INDUCTION AT 0 , 2, 6 WEEK THEN EVERY 8 WEEKS
     Route: 042
     Dates: start: 20210723, end: 20210723
  4. INFLECTRA [Suspect]
     Active Substance: INFLIXIMAB-DYYB
     Dosage: 800  MG INDUCTION AT 0 , 2, 6 WEEK THEN EVERY 8 WEEKS
     Route: 042
     Dates: start: 20210908
  5. INFLECTRA [Suspect]
     Active Substance: INFLIXIMAB-DYYB
     Dosage: 800  MG INDUCTION AT 0 , 2, 6 WEEK THEN EVERY 8 WEEKS
     Route: 042
     Dates: start: 20211005
  6. INFLECTRA [Suspect]
     Active Substance: INFLIXIMAB-DYYB
     Dosage: 800  MG INDUCTION AT 0 , 2, 6 WEEK THEN EVERY 8 WEEKS
     Route: 042
     Dates: start: 20211102
  7. INFLECTRA [Suspect]
     Active Substance: INFLIXIMAB-DYYB
     Dosage: 800  MG INDUCTION AT 0 , 2, 6 WEEK THEN EVERY 8 WEEKS
     Route: 042
     Dates: start: 20211231
  8. INFLECTRA [Suspect]
     Active Substance: INFLIXIMAB-DYYB
     Dosage: 800  MG INDUCTION AT 0 , 2, 6 WEEK THEN EVERY 8 WEEKS
     Route: 042
     Dates: start: 20220223
  9. PREDNISONE [Concomitant]
     Active Substance: PREDNISONE
     Dosage: UNK

REACTIONS (14)
  - Crohn^s disease [Unknown]
  - Weight increased [Unknown]
  - Drug level decreased [Unknown]
  - Arthralgia [Unknown]
  - Anal fissure [Unknown]
  - Pyrexia [Recovered/Resolved]
  - Vomiting [Recovered/Resolved]
  - Nausea [Recovered/Resolved]
  - Condition aggravated [Unknown]
  - Blood pressure systolic increased [Unknown]
  - Stress [Unknown]
  - Overdose [Unknown]
  - Off label use [Unknown]
  - Intentional product use issue [Unknown]

NARRATIVE: CASE EVENT DATE: 20210101
